FAERS Safety Report 7376970-9 (Version None)
Quarter: 2011Q1

REPORT INFORMATION
  Report Type: 
  Country: None (occurrence: None)
  Receive Date: 20110328
  Receipt Date: 20110316
  Transmission Date: 20110831
  Serious: Yes (Hospitalization, Other)
  Sender: FDA-Public Use
  Company Number: US-BIOGENIDEC-2010BI029254

PATIENT
  Age: 60 Year
  Sex: Female
  Weight: 49 kg

DRUGS (2)
  1. AVONEX [Suspect]
     Route: 030
     Dates: start: 20000601
  2. AVONEX [Suspect]
     Indication: MULTIPLE SCLEROSIS
     Route: 030
     Dates: end: 20101203

REACTIONS (9)
  - PNEUMONIA ASPIRATION [None]
  - ENTEROCOLITIS INFECTIOUS [None]
  - NEUROPATHY PERIPHERAL [None]
  - FALL [None]
  - TOOTH ABSCESS [None]
  - DYSPHAGIA [None]
  - WEIGHT DECREASED [None]
  - BLOOD POTASSIUM DECREASED [None]
  - HIP FRACTURE [None]
